FAERS Safety Report 20221186 (Version 3)
Quarter: 2022Q1

REPORT INFORMATION
  Report Type: Spontaneous
  Country: JP (occurrence: JP)
  Receive Date: 20211223
  Receipt Date: 20220119
  Transmission Date: 20220423
  Serious: Yes (Hospitalization, Other)
  Sender: FDA-Public Use
  Company Number: JP-BMKK-BMS-2021-079675AA

PATIENT
  Age: 71 Year
  Sex: Male
  Weight: 67.2 kg

DRUGS (4)
  1. YERVOY [Suspect]
     Active Substance: IPILIMUMAB
     Indication: Non-small cell lung cancer recurrent
     Dosage: 66 MILLIGRAM
     Route: 041
     Dates: start: 20210422, end: 20210603
  2. YERVOY [Suspect]
     Active Substance: IPILIMUMAB
     Dosage: 66 MILLIGRAM
     Route: 041
     Dates: start: 20210804
  3. OPDIVO [Suspect]
     Active Substance: NIVOLUMAB
     Indication: Non-small cell lung cancer recurrent
     Dosage: 360 MILLIGRAM
     Route: 041
     Dates: start: 20210422, end: 20210624
  4. OPDIVO [Suspect]
     Active Substance: NIVOLUMAB
     Dosage: 360 MILLIGRAM
     Route: 041
     Dates: start: 20210804

REACTIONS (2)
  - Adrenal insufficiency [Not Recovered/Not Resolved]
  - Inappropriate antidiuretic hormone secretion [Recovering/Resolving]

NARRATIVE: CASE EVENT DATE: 20210715
